FAERS Safety Report 12899407 (Version 1)
Quarter: 2016Q4

REPORT INFORMATION
  Report Type: Spontaneous
  Country: US (occurrence: US)
  Receive Date: 20161029
  Receipt Date: 20161029
  Transmission Date: 20170207
  Serious: Yes (Hospitalization)
  Sender: FDA-Public Use
  Company Number: None

PATIENT
  Age: 64 Year
  Sex: Male
  Weight: 75 kg

DRUGS (1)
  1. CISPLATIN. [Suspect]
     Active Substance: CISPLATIN
     Dates: end: 20161011

REACTIONS (5)
  - Contusion [None]
  - Fall [None]
  - Laceration [None]
  - Syncope [None]
  - Head injury [None]

NARRATIVE: CASE EVENT DATE: 20161015
